FAERS Safety Report 13118362 (Version 2)
Quarter: 2017Q1

REPORT INFORMATION
  Report Type: Spontaneous
  Country: GB (occurrence: GB)
  Receive Date: 20170116
  Receipt Date: 20170328
  Transmission Date: 20170428
  Serious: Yes (Other)
  Sender: FDA-Public Use
  Company Number: GB-MYLANLABS-2017M1001798

PATIENT

DRUGS (2)
  1. CLOZARIL [Suspect]
     Active Substance: CLOZAPINE
     Dosage: UNK
     Route: 048
  2. CLOZARIL [Suspect]
     Active Substance: CLOZAPINE
     Indication: SCHIZOPHRENIA
     Dosage: UNK
     Route: 048
     Dates: start: 20141023

REACTIONS (5)
  - Neutropenia [Recovered/Resolved]
  - Neoplasm malignant [Unknown]
  - Fungating wound [Unknown]
  - Breast cancer [Unknown]
  - Living in residential institution [Unknown]

NARRATIVE: CASE EVENT DATE: 2014
